FAERS Safety Report 20919805 (Version 2)
Quarter: 2022Q2

REPORT INFORMATION
  Report Type: Spontaneous
  Country: DK (occurrence: DK)
  Receive Date: 20220606
  Receipt Date: 20220610
  Transmission Date: 20220721
  Serious: Yes (Other)
  Sender: FDA-Public Use
  Company Number: DK-ELI_LILLY_AND_COMPANY-DK202205005172

PATIENT
  Age: 66 Year
  Sex: Male

DRUGS (4)
  1. PEMETREXED [Suspect]
     Active Substance: PEMETREXED
     Indication: Epithelioid mesothelioma
     Dosage: UNK UNK, CYCLE
  2. PEMETREXED [Suspect]
     Active Substance: PEMETREXED
     Indication: Mesothelioma malignant
  3. CISPLATIN [Suspect]
     Active Substance: CISPLATIN
     Indication: Epithelioid mesothelioma
     Dosage: UNK, CYCLE
  4. CISPLATIN [Suspect]
     Active Substance: CISPLATIN
     Indication: Mesothelioma malignant

REACTIONS (3)
  - Malignant neoplasm progression [Unknown]
  - Neutropenia [Unknown]
  - Off label use [Unknown]
